FAERS Safety Report 7945734-7 (Version None)
Quarter: 2011Q4

REPORT INFORMATION
  Report Type: 
  Country: None (occurrence: None)
  Receive Date: 20111129
  Receipt Date: 20111116
  Transmission Date: 20120403
  Serious: Yes (Hospitalization, Other)
  Sender: FDA-Public Use
  Company Number: IE-ELI_LILLY_AND_COMPANY-IE201109005828

PATIENT
  Sex: Male

DRUGS (1)
  1. OLANZAPINE [Suspect]
     Route: 030

REACTIONS (9)
  - HOSPITALISATION [None]
  - SEDATION [None]
  - INJECTION SITE PAIN [None]
  - WEIGHT INCREASED [None]
  - HYPERGLYCAEMIA [None]
  - HYPERSOMNIA [None]
  - HYPOGLYCAEMIA [None]
  - MENTAL DISORDER [None]
  - PHOTOSENSITIVITY REACTION [None]
